FAERS Safety Report 5449531-6 (Version None)
Quarter: 2007Q3

REPORT INFORMATION
  Report Type: 
  Country: None (occurrence: None)
  Receive Date: 20070907
  Receipt Date: 20070823
  Transmission Date: 20080115
  Serious: Yes (Hospitalization)
  Sender: FDA-Public Use
  Company Number: 018016

PATIENT
  Age: 7 Year
  Sex: Female

DRUGS (4)
  1. SULFAMETHOXAZOLE AND TRIMETHOPRIM [Suspect]
     Indication: LEPTOSPIROSIS
     Dosage: ORAL
     Route: 048
  2. SULFAMETHOXAZOLE AND TRIMETHOPRIM [Suspect]
     Indication: SCRUB TYPHUS
     Dosage: ORAL
     Route: 048
  3. DOXYCYCLINE [Suspect]
     Indication: LEPTOSPIROSIS
  4. DOXYCYCLINE [Suspect]
     Indication: SCRUB TYPHUS

REACTIONS (22)
  - ALANINE AMINOTRANSFERASE INCREASED [None]
  - ANTINEUTROPHIL CYTOPLASMIC ANTIBODY POSITIVE [None]
  - ASPARTATE AMINOTRANSFERASE INCREASED [None]
  - BIOPSY LIVER ABNORMAL [None]
  - BLOOD ALBUMIN DECREASED [None]
  - CHOLESTASIS [None]
  - DRUG HYPERSENSITIVITY [None]
  - GAMMA-GLUTAMYLTRANSFERASE INCREASED [None]
  - HAEMATOCRIT DECREASED [None]
  - HAEMOGLOBIN DECREASED [None]
  - HEPATOMEGALY [None]
  - INFLAMMATION [None]
  - LIVER DISORDER [None]
  - MEAN CELL VOLUME DECREASED [None]
  - NO THERAPEUTIC RESPONSE [None]
  - ORAL INTAKE REDUCED [None]
  - PLATELET COUNT INCREASED [None]
  - SYMBLEPHARON [None]
  - TOXIC EPIDERMAL NECROLYSIS [None]
  - URINE ANALYSIS ABNORMAL [None]
  - VANISHING BILE DUCT SYNDROME [None]
  - WHITE BLOOD CELL COUNT DECREASED [None]
